FAERS Safety Report 5833127-8 (Version None)
Quarter: 2008Q3

REPORT INFORMATION
  Report Type: 
  Country: None (occurrence: None)
  Receive Date: 20080731
  Receipt Date: 20080716
  Transmission Date: 20090109
  Serious: Yes (Death, Hospitalization, Other)
  Sender: FDA-Public Use
  Company Number: 2008AL008649

PATIENT
  Age: 65 Year
  Sex: Female
  Weight: 68.0396 kg

DRUGS (2)
  1. DIGOXIN [Suspect]
     Indication: ANTICOAGULANT THERAPY
     Dosage: 0.25MG, DAILY, PO
     Route: 048
     Dates: start: 20071001
  2. DIGOXIN [Suspect]
     Indication: HEART RATE IRREGULAR
     Dosage: 0.25MG, DAILY, PO
     Route: 048
     Dates: start: 20071001

REACTIONS (2)
  - BRAIN DEATH [None]
  - HAEMORRHAGIC STROKE [None]
